FAERS Safety Report 11951425 (Version 1)
Quarter: 2016Q1

REPORT INFORMATION
  Report Type: Spontaneous
  Country: US (occurrence: None)
  Receive Date: 20160122
  Receipt Date: 20160122
  Transmission Date: 20160526
  Serious: Yes (Life-Threatening, Hospitalization)
  Sender: FDA-Public Use
  Company Number: None

PATIENT
  Age: 89 Year
  Sex: Female
  Weight: 61.9 kg

DRUGS (2)
  1. PANTOPRAZOLE 40 MG [Suspect]
     Active Substance: PANTOPRAZOLE SODIUM
     Indication: GASTROOESOPHAGEAL REFLUX DISEASE
     Dosage: } OR EQUAL TO 3 YEARS
     Route: 048
  2. CEFDINIR 300 MG [Suspect]
     Active Substance: CEFDINIR
     Route: 048

REACTIONS (2)
  - Sepsis [None]
  - Clostridium difficile colitis [None]

NARRATIVE: CASE EVENT DATE: 20150515
